FAERS Safety Report 26169256 (Version 1)
Quarter: 2025Q4

REPORT INFORMATION
  Report Type: Spontaneous
  Country: CN (occurrence: CN)
  Receive Date: 20251217
  Receipt Date: 20251217
  Transmission Date: 20260117
  Serious: Yes (Hospitalization, Other)
  Sender: NOVO NORDISK
  Company Number: CN-NOVOPROD-1580891

PATIENT
  Age: 46 Year
  Sex: Male
  Weight: 82 kg

DRUGS (2)
  1. OZEMPIC [Suspect]
     Active Substance: SEMAGLUTIDE
     Indication: Type 2 diabetes mellitus
     Dosage: 1 MG, QW
     Dates: start: 20240717
  2. METFORMIN HYDROCHLORIDE [Suspect]
     Active Substance: METFORMIN HYDROCHLORIDE
     Indication: Type 2 diabetes mellitus
     Dosage: UNK
     Dates: start: 20240522

REACTIONS (5)
  - Ureterolithiasis [Recovering/Resolving]
  - Hydronephrosis [Unknown]
  - Nephrolithiasis [Unknown]
  - Diverticulum intestinal [Unknown]
  - Renal disorder [Unknown]

NARRATIVE: CASE EVENT DATE: 20241214
